FAERS Safety Report 12217802 (Version 1)
Quarter: 2016Q1

REPORT INFORMATION
  Report Type: Spontaneous
  Country: US (occurrence: None)
  Receive Date: 20160328
  Receipt Date: 20160328
  Transmission Date: 20160526
  Serious: Yes (Hospitalization, Disabling)
  Sender: FDA-Public Use
  Company Number: None

PATIENT
  Age: 59 Year
  Sex: Female
  Weight: 78.1 kg

DRUGS (13)
  1. ALPRAZOLAM. [Concomitant]
     Active Substance: ALPRAZOLAM
  2. OSTEO-BIFLEX [Concomitant]
  3. VIT A [Concomitant]
  4. ZOMETA [Suspect]
     Active Substance: ZOLEDRONIC ACID
     Indication: METASTASES TO BONE
     Route: 042
     Dates: start: 20131101, end: 20150820
  5. CALCIUM [Concomitant]
     Active Substance: CALCIUM
  6. MELOXICAM. [Concomitant]
     Active Substance: MELOXICAM
  7. MAGNESIUM [Concomitant]
     Active Substance: MAGNESIUM
  8. VITAMIN D [Concomitant]
     Active Substance: CHOLECALCIFEROL
  9. PAROXETINE [Concomitant]
     Active Substance: PAROXETINE\PAROXETINE HYDROCHLORIDE
  10. VITAMIN E [Concomitant]
     Active Substance: .ALPHA.-TOCOPHEROL
  11. LETROZOLE. [Concomitant]
     Active Substance: LETROZOLE
  12. VIT B [Concomitant]
     Active Substance: VITAMIN B
  13. VITAMIN C [Concomitant]
     Active Substance: ASCORBIC ACID

REACTIONS (3)
  - Fall [None]
  - Femur fracture [None]
  - Drug ineffective [None]

NARRATIVE: CASE EVENT DATE: 20150315
